FAERS Safety Report 11339486 (Version 2)
Quarter: 2015Q3

REPORT INFORMATION
  Report Type: Spontaneous
  Country: ZA (occurrence: ZA)
  Receive Date: 20150805
  Receipt Date: 20150810
  Transmission Date: 20151125
  Serious: Yes (Other)
  Sender: FDA-Public Use
  Company Number: ZA-ORION CORPORATION ORION PHARMA-ENT 2015-0969

PATIENT
  Age: 80 Year
  Sex: Male

DRUGS (2)
  1. AZILECT [Concomitant]
     Active Substance: RASAGILINE MESYLATE
     Route: 065
  2. COMTAN [Suspect]
     Active Substance: ENTACAPONE
     Indication: PARKINSON^S DISEASE
     Route: 065

REACTIONS (11)
  - Fall [Unknown]
  - Compulsive shopping [Unknown]
  - Decreased appetite [Unknown]
  - Insomnia [Unknown]
  - Malaise [Unknown]
  - Weight decreased [Unknown]
  - Hypotension [Unknown]
  - Dependence [Unknown]
  - Hallucination [Unknown]
  - Protrusion tongue [Unknown]
  - Mania [Unknown]
